FAERS Safety Report 19421273 (Version 1)
Quarter: 2021Q2

REPORT INFORMATION
  Report Type: Spontaneous
  Country: FR (occurrence: FR)
  Receive Date: 20210616
  Receipt Date: 20210616
  Transmission Date: 20210717
  Serious: Yes (Death)
  Sender: FDA-Public Use
  Company Number: FR-SUN PHARMACEUTICAL INDUSTRIES LTD-2021RR-300873

PATIENT
  Age: 75 Year
  Sex: Male

DRUGS (3)
  1. METHYLPREDNISOLONE. [Suspect]
     Active Substance: METHYLPREDNISOLONE
     Indication: PAIN
     Dosage: 1 MILLIGRAM, DAILY
     Route: 042
     Dates: start: 20201223, end: 20201225
  2. BACLOFENE [Suspect]
     Active Substance: BACLOFEN
     Indication: PAIN
     Dosage: 20 MILLIGRAM, DAILY
     Route: 048
     Dates: start: 20201125
  3. PREGABALIN. [Suspect]
     Active Substance: PREGABALIN
     Indication: PAIN
     Dosage: 175 MILLIGRAM, DAILY
     Route: 048
     Dates: start: 20201029

REACTIONS (3)
  - Completed suicide [Fatal]
  - Depression [Not Recovered/Not Resolved]
  - Confusional state [Not Recovered/Not Resolved]

NARRATIVE: CASE EVENT DATE: 20201203
